FAERS Safety Report 12194826 (Version 1)
Quarter: 2016Q1

REPORT INFORMATION
  Report Type: Spontaneous
  Country: US (occurrence: None)
  Receive Date: 20160318
  Receipt Date: 20160318
  Transmission Date: 20160526
  Serious: No
  Sender: FDA-Public Use
  Company Number: None

PATIENT
  Sex: Female

DRUGS (1)
  1. IMATINIB MES 400MG SUN PHARMACEUTICALS [Suspect]
     Active Substance: IMATINIB MESYLATE
     Indication: PRODUCT USED FOR UNKNOWN INDICATION
     Route: 048
     Dates: start: 20160220

REACTIONS (6)
  - Fatigue [None]
  - Peripheral swelling [None]
  - Muscle spasms [None]
  - Swelling face [None]
  - Insomnia [None]
  - Communication disorder [None]
